FAERS Safety Report 7040033-2 (Version None)
Quarter: 2010Q4

REPORT INFORMATION
  Report Type: 
  Country: None (occurrence: None)
  Receive Date: 20101012
  Receipt Date: 20101005
  Transmission Date: 20110411
  Serious: Yes (Hospitalization, Other)
  Sender: FDA-Public Use
  Company Number: CA-ROXANE LABORATORIES, INC.-2010-RO-01320RO

PATIENT
  Age: 36 Year
  Sex: Male

DRUGS (5)
  1. LAMOTRIGINE [Suspect]
     Dosage: 500 MG
  2. LITHIUM CARBONATE [Suspect]
     Dosage: 450 MG
  3. QUETIAPINE [Suspect]
     Dosage: 400 MG
  4. ZOPICLONE [Suspect]
     Dosage: 7.5 MG
  5. INSULIN [Suspect]

REACTIONS (4)
  - CHOLESTASIS [None]
  - HYPERCHOLESTEROLAEMIA [None]
  - HYPONATRAEMIA [None]
  - LOW DENSITY LIPOPROTEIN INCREASED [None]
